FAERS Safety Report 25164748 (Version 2)
Quarter: 2025Q4

REPORT INFORMATION
  Report Type: Report from Study
  Country: US (occurrence: US)
  Receive Date: 20250406
  Receipt Date: 20251125
  Transmission Date: 20260117
  Serious: Yes (Other)
  Sender: ABBVIE
  Company Number: US-ABBVIE-6179156

PATIENT
  Age: 61 Year
  Sex: Female
  Weight: 97.522 kg

DRUGS (3)
  1. HUMIRA [Suspect]
     Active Substance: ADALIMUMAB
     Indication: Arthritis enteropathic
     Dosage: SOLUTION FOR INJECTION IN PRE-FILLED SYRINGE?FORM STRENGTH 40 MG
     Route: 058
     Dates: start: 2017
  2. HUMIRA [Suspect]
     Active Substance: ADALIMUMAB
     Indication: Crohn^s disease
     Dosage: SOLUTION FOR INJECTION IN PRE-FILLED SYRINGE
     Route: 058
     Dates: start: 20181105
  3. CHOLINE [Concomitant]
     Active Substance: CHOLINE
     Indication: Memory impairment
     Dosage: 900 MILLIGRAM

REACTIONS (17)
  - HLA-B*27 positive [Recovered/Resolved]
  - Stress fracture [Recovered/Resolved]
  - Memory impairment [Recovering/Resolving]
  - Cyst [Recovered/Resolved]
  - Electrocardiogram abnormal [Recovered/Resolved]
  - Osteoarthritis [Recovered/Resolved]
  - Arthritis [Recovered/Resolved]
  - Arthralgia [Recovering/Resolving]
  - Fall [Recovered/Resolved]
  - Dyspnoea [Not Recovered/Not Resolved]
  - Asthenia [Recovering/Resolving]
  - Arthralgia [Recovered/Resolved]
  - Bronchiectasis [Recovered/Resolved]
  - Breast cancer female [Recovering/Resolving]
  - Oedema [Unknown]
  - Tibia fracture [Recovered/Resolved]
  - Wound [Recovered/Resolved]

NARRATIVE: CASE EVENT DATE: 20170101
